FAERS Safety Report 5027572-0 (Version None)
Quarter: 2006Q2

REPORT INFORMATION
  Report Type: 
  Country: None (occurrence: None)
  Receive Date: 20060616
  Receipt Date: 20060607
  Transmission Date: 20061013
  Serious: Yes (Other)
  Sender: FDA-Public Use
  Company Number: PHBS2006JP08737

PATIENT

DRUGS (1)
  1. DIOVAN [Suspect]
     Route: 048
     Dates: start: 20060426

REACTIONS (1)
  - CEREBRAL INFARCTION [None]
